FAERS Safety Report 5270718-X (Version None)
Quarter: 2007Q1

REPORT INFORMATION
  Report Type: 
  Country: None (occurrence: None)
  Receive Date: 20070319
  Receipt Date: 20070319
  Transmission Date: 20070707
  Serious: Yes (Other)
  Sender: FDA-Public Use
  Company Number: None

PATIENT
  Sex: Male
  Weight: 67.586 kg

DRUGS (2)
  1. XENICAL [Suspect]
     Indication: HEPATIC STEATOSIS
     Dosage: 120 MG  TID WITH MEALS  PO
     Route: 048
     Dates: start: 20060122, end: 20060930
  2. PLACEBO [Suspect]
     Dosage: TID WITH MEALS  PO
     Route: 048

REACTIONS (3)
  - ALPHA 1 FOETOPROTEIN INCREASED [None]
  - HEPATOCELLULAR DAMAGE [None]
  - LIVER DISORDER [None]
